FAERS Safety Report 5128559-X (Version None)
Quarter: 2006Q4

REPORT INFORMATION
  Report Type: 
  Country: None (occurrence: None)
  Receive Date: 20061017
  Receipt Date: 20061013
  Transmission Date: 20070319
  Serious: Yes (Hospitalization)
  Sender: FDA-Public Use
  Company Number: US-GLAXOSMITHKLINE-A0623540A

PATIENT
  Age: 86 Year
  Sex: Female

DRUGS (5)
  1. FLOVENT [Suspect]
     Indication: DRUG USE FOR UNKNOWN INDICATION
     Route: 055
     Dates: end: 20061012
  2. PREVACID [Concomitant]
  3. ASPIRIN [Concomitant]
  4. NORVASC [Concomitant]
  5. POLYPHARMACY [Concomitant]

REACTIONS (6)
  - DYSPNOEA [None]
  - HYPERSOMNIA [None]
  - MENTAL IMPAIRMENT [None]
  - PHARMACEUTICAL PRODUCT COMPLAINT [None]
  - PNEUMONIA [None]
  - RIB FRACTURE [None]
